FAERS Safety Report 20425102 (Version 1)
Quarter: 2022Q1

REPORT INFORMATION
  Report Type: Report from Study
  Country: US (occurrence: US)
  Receive Date: 20220204
  Receipt Date: 20220204
  Transmission Date: 20220423
  Serious: No
  Sender: FDA-Public Use
  Company Number: US-EXELIXIS-CABO-21036606

PATIENT
  Age: 55 Year
  Sex: Male
  Weight: 104.31 kg

DRUGS (6)
  1. CABOMETYX [Suspect]
     Active Substance: CABOZANTINIB S-MALATE
     Indication: Hepatocellular carcinoma
     Dosage: 60 MG, QD
     Route: 048
     Dates: start: 20201219
  2. PROGRAF [Concomitant]
     Active Substance: TACROLIMUS
  3. ATORVASTATIN CALCIUM [Concomitant]
     Active Substance: ATORVASTATIN CALCIUM
  4. AMLODIPINE BESYLATE [Concomitant]
     Active Substance: AMLODIPINE BESYLATE
  5. VITAMINS [Concomitant]
     Active Substance: VITAMINS
  6. PROTEIN [Concomitant]
     Active Substance: PROTEIN

REACTIONS (7)
  - Illness [Unknown]
  - Hypoaesthesia [Unknown]
  - Paraesthesia [Unknown]
  - Cough [Unknown]
  - Diarrhoea [Recovered/Resolved]
  - Dizziness [Unknown]
  - COVID-19 [Unknown]

NARRATIVE: CASE EVENT DATE: 20201226
